FAERS Safety Report 6628600-9 (Version None)
Quarter: 2010Q1

REPORT INFORMATION
  Report Type: 
  Country: None (occurrence: None)
  Receive Date: 20100311
  Receipt Date: 20100304
  Transmission Date: 20100710
  Serious: Yes (Hospitalization)
  Sender: FDA-Public Use
  Company Number: IE-TEVA-226169ISR

PATIENT
  Sex: Male

DRUGS (2)
  1. HALOPERIDOL [Suspect]
  2. RISPERIDONE [Suspect]

REACTIONS (1)
  - PANCYTOPENIA [None]
